FAERS Safety Report 9132655 (Version 3)
Quarter: 2013Q1

REPORT INFORMATION
  Report Type: Spontaneous
  Country: US (occurrence: US)
  Receive Date: 20130301
  Receipt Date: 20130313
  Transmission Date: 20140127
  Serious: Yes (Hospitalization, Disabling, Other)
  Sender: FDA-Public Use
  Company Number: US-009507513-0410USA02411

PATIENT
  Sex: Female

DRUGS (1)
  1. VIOXX [Suspect]
     Dosage: 25 MG, QD
     Route: 048
     Dates: start: 2001, end: 200403

REACTIONS (19)
  - Haemorrhage [Recovering/Resolving]
  - Pain [Recovering/Resolving]
  - Dyspnoea [Recovering/Resolving]
  - Rectal haemorrhage [Unknown]
  - Cerebrovascular accident [Recovering/Resolving]
  - Adverse event [Recovering/Resolving]
  - Asthenia [Recovering/Resolving]
  - Local swelling [Recovering/Resolving]
  - Paraesthesia [Recovering/Resolving]
  - Cardiomegaly [Not Recovered/Not Resolved]
  - Upper gastrointestinal haemorrhage [Unknown]
  - Cardiac disorder [Unknown]
  - Back pain [Unknown]
  - Dyspepsia [Unknown]
  - Dizziness [Unknown]
  - Local swelling [Unknown]
  - Malaise [Unknown]
  - Sensation of heaviness [Unknown]
  - Palpitations [Unknown]
